FAERS Safety Report 10040226 (Version 1)
Quarter: 2014Q1

REPORT INFORMATION
  Report Type: Report from Study
  Country: CN (occurrence: CN)
  Receive Date: 20140327
  Receipt Date: 20140327
  Transmission Date: 20141002
  Serious: Yes (Other)
  Sender: FDA-Public Use
  Company Number: CN-ROCHE-1372218

PATIENT
  Age: 38 Year
  Sex: Male

DRUGS (2)
  1. PEGASYS [Suspect]
     Indication: HEPATITIS C
     Route: 058
     Dates: start: 20120619, end: 20120915
  2. PEGASYS [Suspect]
     Route: 058
     Dates: start: 201210, end: 20130404

REACTIONS (3)
  - White blood cell count decreased [Unknown]
  - Poor quality sleep [Unknown]
  - Chest discomfort [Unknown]
